FAERS Safety Report 22598833 (Version 7)
Quarter: 2024Q2

REPORT INFORMATION
  Report Type: Report from Study
  Country: BD (occurrence: BD)
  Receive Date: 20230614
  Receipt Date: 20240617
  Transmission Date: 20240716
  Serious: Yes (Other)
  Sender: FDA-Public Use
  Company Number: BD-002147023-NVSC2023BD097242

PATIENT
  Age: 48 Year
  Sex: Male
  Weight: 74 kg

DRUGS (1)
  1. ENTRESTO [Suspect]
     Active Substance: SACUBITRIL\VALSARTAN
     Indication: Cardiac failure chronic
     Dosage: 1 DOSAGE FORM, BID
     Route: 048
     Dates: start: 2022

REACTIONS (7)
  - Asphyxia [Recovered/Resolved]
  - Diabetes mellitus [Unknown]
  - Feeling hot [Not Recovered/Not Resolved]
  - Throat irritation [Recovering/Resolving]
  - Discomfort [Not Recovered/Not Resolved]
  - Chest pain [Recovered/Resolved]
  - Cough [Recovering/Resolving]

NARRATIVE: CASE EVENT DATE: 20220901
